FAERS Safety Report 8050996-4 (Version None)
Quarter: 2012Q1

REPORT INFORMATION
  Report Type: 
  Country: None (occurrence: None)
  Receive Date: 20120117
  Receipt Date: 20120110
  Transmission Date: 20120608
  Serious: Yes (Other)
  Sender: FDA-Public Use
  Company Number: PHHY2012GB002623

PATIENT

DRUGS (2)
  1. CYCLOSPORINE [Suspect]
     Indication: CHRONIC GRAFT VERSUS HOST DISEASE
     Dosage: UNK UKN, UNK
  2. METHYLPREDNISOLONE [Concomitant]
     Dosage: UNK UKN, UNK

REACTIONS (4)
  - DIARRHOEA [None]
  - DISEASE RECURRENCE [None]
  - GASTROINTESTINAL INFLAMMATION [None]
  - BILE ACID MALABSORPTION [None]
